FAERS Safety Report 9155734 (Version 2)
Quarter: 2014Q4

REPORT INFORMATION
  Report Type: Spontaneous
  Country: IT (occurrence: IT)
  Receive Date: 20130311
  Receipt Date: 20141230
  Transmission Date: 20150529
  Serious: Yes (Other)
  Sender: FDA-Public Use
  Company Number: PHHY2013IT021840

PATIENT
  Age: 83 Year
  Sex: Female

DRUGS (1)
  1. ATORVASTATIN [Suspect]
     Active Substance: ATORVASTATIN
     Indication: PRODUCT USED FOR UNKNOWN INDICATION
     Dosage: 20 MG, QD
     Route: 048

REACTIONS (9)
  - Polymyositis [Recovering/Resolving]
  - Muscle atrophy [Recovering/Resolving]
  - Fatigue [Recovering/Resolving]
  - Abasia [Recovering/Resolving]
  - Oedema peripheral [Recovering/Resolving]
  - Myalgia [Recovering/Resolving]
  - Muscle necrosis [Recovering/Resolving]
  - Muscular weakness [Recovering/Resolving]
  - Myopathy [Recovering/Resolving]
